FAERS Safety Report 8802046 (Version 7)
Quarter: 2012Q4

REPORT INFORMATION
  Report Type: 
  Country: US (occurrence: US)
  Receive Date: 20120921
  Receipt Date: 20121219
  Transmission Date: 20130627
  Serious: No
  Sender: FDA-Public Use
  Company Number: US-VERTEX PHARMACEUTICAL INC.-2012-021254

PATIENT
  Age: 37 None
  Sex: Male
  Weight: 85 kg

DRUGS (4)
  1. VX-950 (TELAPREVIR) [Suspect]
     Indication: HEPATITIS C
     Dosage: 750 mg, tid
     Route: 048
     Dates: start: 201207, end: 2012
  2. PEGASYS [Suspect]
     Indication: HEPATITIS C
     Dosage: 180 ?g, qw
     Route: 058
     Dates: start: 201207, end: 2012
  3. RIBAPAK [Suspect]
     Indication: HEPATITIS C
     Dosage: 400 mg, bid
     Route: 048
     Dates: start: 201207, end: 2012
  4. RIBAPAK [Suspect]
     Dosage: 400 mg in AM + 600 mg in PM
     Route: 048
     Dates: start: 201208, end: 2012

REACTIONS (18)
  - Anxiety [Unknown]
  - Epistaxis [Unknown]
  - Conjunctivitis infective [Unknown]
  - Eye swelling [Unknown]
  - Eyelid oedema [Unknown]
  - Eye irritation [Unknown]
  - Eye pruritus [Unknown]
  - Hyperhidrosis [Unknown]
  - Dry skin [Unknown]
  - Injection site discolouration [Unknown]
  - Constipation [Unknown]
  - Chapped lips [Unknown]
  - Fatigue [Unknown]
  - Drug ineffective [Unknown]
  - Haemorrhoids [Unknown]
  - Rectal haemorrhage [Unknown]
  - Pruritus [Unknown]
  - Nausea [Unknown]
